FAERS Safety Report 4469758-X (Version None)
Quarter: 2004Q4

REPORT INFORMATION
  Report Type: 
  Country: None (occurrence: None)
  Receive Date: 20041005
  Receipt Date: 20040920
  Transmission Date: 20050328
  Serious: No
  Sender: FDA-Public Use
  Company Number: 2004GB02251

PATIENT
  Age: 37 Year
  Sex: Male
  Weight: 82.55 kg

DRUGS (8)
  1. QUETIAPINE [Suspect]
     Indication: BIPOLAR DISORDER
     Dosage: UP TO 150 MG
     Dates: start: 20040824, end: 20040827
  2. QUETIAPINE [Suspect]
     Indication: MANIA
     Dosage: UP TO 150 MG
     Dates: start: 20040824, end: 20040827
  3. ABILIFY [Suspect]
     Indication: MANIA
     Dosage: UP TO 20MG
     Dates: start: 20040804, end: 20040824
  4. PARACETAMOL [Concomitant]
  5. PROCYCLIDINE HYDROCHLORIDE 2MG TAB [Concomitant]
  6. MELATONIN [Concomitant]
  7. LITHIUM [Concomitant]
  8. MOVICOL [Concomitant]

REACTIONS (9)
  - BLOOD PRESSURE INCREASED [None]
  - CONDITION AGGRAVATED [None]
  - DISORIENTATION [None]
  - DYSARTHRIA [None]
  - HYPERHIDROSIS [None]
  - MOBILITY DECREASED [None]
  - NEUROLEPTIC MALIGNANT SYNDROME [None]
  - TACHYCARDIA [None]
  - TREMOR [None]
